FAERS Safety Report 21183836 (Version 1)
Quarter: 2022Q3

REPORT INFORMATION
  Report Type: Other
  Country: IN (occurrence: None)
  Receive Date: 20220808
  Receipt Date: 20220808
  Transmission Date: 20221027
  Serious: Yes (Hospitalization)
  Sender: FDA-Public Use
  Company Number: IN-ROCHE-3131563

PATIENT
  Age: 56 Year
  Sex: Female

DRUGS (13)
  1. PERJETA [Suspect]
     Active Substance: PERTUZUMAB
     Indication: Breast cancer
     Dosage: ONGOING
     Route: 042
     Dates: start: 20220430
  2. DOLO 650 [Concomitant]
  3. THYROX [Concomitant]
  4. METROGEL [Concomitant]
     Active Substance: METRONIDAZOLE
  5. CANAGLIFLOZIN [Concomitant]
     Active Substance: CANAGLIFLOZIN
  6. ACETAMINOPHEN [Concomitant]
     Active Substance: ACETAMINOPHEN
  7. DUPHALAC [Concomitant]
     Active Substance: LACTULOSE
  8. INSULIN ASPART [Concomitant]
     Active Substance: INSULIN ASPART
  9. TRASTUZUMAB [Concomitant]
     Active Substance: TRASTUZUMAB
     Route: 041
  10. DOCETAXEL [Concomitant]
     Active Substance: DOCETAXEL
  11. CARBOPLATIN [Concomitant]
     Active Substance: CARBOPLATIN
  12. PANTOPRAZOLE SODIUM [Concomitant]
     Active Substance: PANTOPRAZOLE SODIUM
  13. METRONIDAZOLE [Concomitant]
     Active Substance: METRONIDAZOLE

REACTIONS (2)
  - Dehydration [Unknown]
  - Asthenia [Unknown]
